FAERS Safety Report 21728293 (Version 2)
Quarter: 2023Q1

REPORT INFORMATION
  Report Type: Spontaneous
  Country: NL (occurrence: NL)
  Receive Date: 20221214
  Receipt Date: 20230125
  Transmission Date: 20230417
  Serious: Yes (Hospitalization)
  Sender: FDA-Public Use
  Company Number: NL-BIOGEN-2022BI01174806

PATIENT
  Age: 52 Year
  Sex: Female

DRUGS (1)
  1. DALFAMPRIDINE [Suspect]
     Active Substance: DALFAMPRIDINE
     Indication: Multiple sclerosis
     Route: 050
     Dates: start: 20191002

REACTIONS (3)
  - Fatigue [Unknown]
  - Aphasia [Unknown]
  - Cystitis [Unknown]

NARRATIVE: CASE EVENT DATE: 20221207
